FAERS Safety Report 5158820-4 (Version None)
Quarter: 2006Q4

REPORT INFORMATION
  Report Type: 
  Country: None (occurrence: None)
  Receive Date: 20061128
  Receipt Date: 20061115
  Transmission Date: 20070319
  Serious: Yes (Other)
  Sender: FDA-Public Use
  Company Number: US-ELI_LILLY_AND_COMPANY-US200611003410

PATIENT
  Sex: Female

DRUGS (8)
  1. FORTEO [Suspect]
     Indication: OSTEOPOROSIS
     Dates: start: 20051110, end: 20060823
  2. CALCIUM [Concomitant]
  3. TUMS [Concomitant]
  4. METHOTREXATE [Concomitant]
  5. ARAVA [Concomitant]
  6. LEVOXYL [Concomitant]
  7. PLAQUENIL [Concomitant]
  8. PREDNISONE TAB [Concomitant]

REACTIONS (3)
  - BASAL CELL CARCINOMA [None]
  - BLOOD CALCIUM INCREASED [None]
  - DYSPEPSIA [None]
